FAERS Safety Report 6239645-5 (Version None)
Quarter: 2009Q2

REPORT INFORMATION
  Report Type: 
  Country: None (occurrence: None)
  Receive Date: 20090619
  Receipt Date: 20090608
  Transmission Date: 20091009
  Serious: Yes (Hospitalization)
  Sender: FDA-Public Use
  Company Number: 2009-192381-NL

PATIENT
  Age: 84 Year
  Sex: Female

DRUGS (2)
  1. MIRTAZAPINE [Suspect]
     Dosage: 30 MG/5 DF ONCE
     Dates: start: 20090206, end: 20090207
  2. CLOZAPINE [Suspect]
     Dosage: 0.5 DF
     Dates: start: 20090206, end: 20090207

REACTIONS (9)
  - ANAEMIA [None]
  - DRUG DISPENSING ERROR [None]
  - FLUID RETENTION [None]
  - GASTRIC HAEMORRHAGE [None]
  - LIVER DISORDER [None]
  - MEDICATION ERROR [None]
  - OVERDOSE [None]
  - SEDATION [None]
  - UNRESPONSIVE TO STIMULI [None]
